FAERS Safety Report 7942785-3 (Version None)
Quarter: 2011Q4

REPORT INFORMATION
  Report Type: 
  Country: None (occurrence: None)
  Receive Date: 20111128
  Receipt Date: 20111117
  Transmission Date: 20120403
  Serious: Yes (Hospitalization)
  Sender: FDA-Public Use
  Company Number: ES-UCBSA-046042

PATIENT
  Age: 31 Year
  Sex: Male

DRUGS (6)
  1. ACETAMINOPHEN [Concomitant]
     Indication: PERIOPERATIVE ANALGESIA
     Dosage: DAILY DOSE: 3 G
     Route: 048
     Dates: start: 20110418, end: 20110621
  2. OMEPRAZOLE [Concomitant]
     Indication: GASTRITIS PROPHYLAXIS
     Dosage: DAILY DOSE: 20 MG
     Route: 048
     Dates: start: 20110415
  3. KEPPRA [Suspect]
     Indication: CONVULSION
     Dosage: DAILY DOSE: 2 G
     Route: 048
     Dates: start: 20110415, end: 20110617
  4. LORACEPAM [Concomitant]
     Dosage: DAILY DOSE: 2MG
     Route: 048
     Dates: start: 20110421, end: 20110616
  5. METAMIZOL [Concomitant]
     Indication: PERIOPERATIVE ANALGESIA
     Route: 048
     Dates: start: 20110614, end: 20110621
  6. DEXAMETHASONE PHOSFATE [Concomitant]
     Indication: BRAIN NEOPLASM
     Dates: start: 20110415, end: 20110531

REACTIONS (5)
  - PNEUMONITIS [None]
  - RASH ERYTHEMATOUS [None]
  - ARTHRALGIA [None]
  - PYREXIA [None]
  - PAIN IN EXTREMITY [None]
